FAERS Safety Report 7769853-3 (Version None)
Quarter: 2011Q3

REPORT INFORMATION
  Report Type: 
  Country: None (occurrence: None)
  Receive Date: 20110922
  Receipt Date: 20110524
  Transmission Date: 20111222
  Serious: No
  Sender: FDA-Public Use
  Company Number: US-ASTRAZENECA-2011SE31632

PATIENT
  Age: 28 Year
  Sex: Female

DRUGS (3)
  1. SEROQUEL [Suspect]
     Indication: PANIC ATTACK
     Route: 048
  2. SEROQUEL [Suspect]
     Route: 048
  3. ZOLOFT [Concomitant]

REACTIONS (3)
  - HYPERSOMNIA [None]
  - OFF LABEL USE [None]
  - FEELING ABNORMAL [None]
